FAERS Safety Report 4476590-X (Version None)
Quarter: 2004Q4

REPORT INFORMATION
  Report Type: 
  Country: None (occurrence: None)
  Receive Date: 20041013
  Receipt Date: 20031020
  Transmission Date: 20050328
  Serious: Yes (Hospitalization, Other)
  Sender: FDA-Public Use
  Company Number: USA031050402

PATIENT
  Age: 59 Year
  Sex: Female
  Weight: 67 kg

DRUGS (21)
  1. FORTEO [Suspect]
     Indication: OSTEOPOROSIS
     Dosage: 11 U DAY
     Dates: start: 20031006
  2. HUMALOG [Suspect]
  3. FOSAMAX [Concomitant]
  4. MIACALCIN (CALCITONIN) [Concomitant]
  5. REMICADE [Concomitant]
  6. ARAVA [Concomitant]
  7. ACETYLSALICYLIC ACID SRT [Concomitant]
  8. CARDIZEM CD [Concomitant]
  9. CLIMARA [Concomitant]
  10. CELEBREX [Concomitant]
  11. CALCIUM CITRATE [Concomitant]
  12. IMDUR [Concomitant]
  13. LANTUS [Concomitant]
  14. KLONOPIN [Concomitant]
  15. LAMISIL [Concomitant]
  16. SINEMET [Concomitant]
  17. ZOLOFT [Concomitant]
  18. DURAGESIC [Concomitant]
  19. LIDODERM (LIDOCAINE) [Concomitant]
  20. LORTAB [Concomitant]
  21. HUMIRA [Concomitant]

REACTIONS (15)
  - ARTHRALGIA [None]
  - BACK PAIN [None]
  - CORONARY ARTERY SURGERY [None]
  - FRACTURED SACRUM [None]
  - IMPAIRED HEALING [None]
  - JOINT SWELLING [None]
  - MEDICATION ERROR [None]
  - NERVE COMPRESSION [None]
  - OEDEMA PERIPHERAL [None]
  - OSTEOARTHRITIS [None]
  - OSTEOPOROTIC FRACTURE [None]
  - PAIN [None]
  - PAIN IN EXTREMITY [None]
  - PULMONARY OEDEMA [None]
  - SNEEZING [None]
